FAERS Safety Report 5980107-8 (Version None)
Quarter: 2008Q4

REPORT INFORMATION
  Report Type: 
  Country: None (occurrence: None)
  Receive Date: 20081205
  Receipt Date: 20081128
  Transmission Date: 20090506
  Serious: Yes (Death)
  Sender: FDA-Public Use
  Company Number: RU-CELGENEUS-251-C5013-08111514

PATIENT
  Sex: Male
  Weight: 72 kg

DRUGS (7)
  1. REVLIMID [Suspect]
     Indication: MULTIPLE MYELOMA
     Route: 048
     Dates: start: 20080909, end: 20080920
  2. REVLIMID [Suspect]
     Route: 048
     Dates: start: 20081105
  3. REVLIMID [Suspect]
     Indication: MULTIPLE MYELOMA
     Route: 048
     Dates: start: 20070823, end: 20080324
  4. REVLIMID [Suspect]
     Route: 048
     Dates: start: 20080508, end: 20080825
  5. MELPHALAN [Suspect]
     Indication: MULTIPLE MYELOMA
     Route: 065
     Dates: start: 20070823, end: 20080307
  6. MELPHALAN [Suspect]
     Route: 065
     Dates: start: 20080508, end: 20080511
  7. PREDNISONE TAB [Suspect]
     Indication: MULTIPLE MYELOMA
     Route: 065
     Dates: start: 20070823, end: 20080511

REACTIONS (1)
  - MULTIPLE MYELOMA [None]
